FAERS Safety Report 5857304-5 (Version None)
Quarter: 2008Q3

REPORT INFORMATION
  Report Type: 
  Country: None (occurrence: None)
  Receive Date: 20080822
  Receipt Date: 20080812
  Transmission Date: 20090109
  Serious: Yes (Other)
  Sender: FDA-Public Use
  Company Number: TRP_02045_2008

PATIENT
  Sex: Male
  Weight: 94.3482 kg

DRUGS (6)
  1. INFERGEN [Suspect]
     Indication: HEPATITIS C
     Dosage: (15 UG QD SUBCUTANEOUS)
     Route: 058
     Dates: start: 20070911, end: 20080727
  2. RIBAVIRIN [Suspect]
     Indication: HEPATITIS C
     Dosage: (600 MG BID ORAL)
     Route: 048
  3. TYLENOL (CAPLET) [Concomitant]
  4. GLUCOSAMINE [Concomitant]
  5. Q10 [Concomitant]
  6. ZINC [Concomitant]

REACTIONS (11)
  - AMNESIA [None]
  - BALANCE DISORDER [None]
  - EUPHORIC MOOD [None]
  - HEADACHE [None]
  - HYPOAESTHESIA [None]
  - ILL-DEFINED DISORDER [None]
  - INJECTION SITE REACTION [None]
  - MOOD ALTERED [None]
  - OEDEMA PERIPHERAL [None]
  - PYREXIA [None]
  - TREMOR [None]
